FAERS Safety Report 16152826 (Version 3)
Quarter: 2020Q3

REPORT INFORMATION
  Report Type: Spontaneous
  Country: FR (occurrence: FR)
  Receive Date: 20190403
  Receipt Date: 20200703
  Transmission Date: 20201102
  Serious: Yes (Hospitalization)
  Sender: FDA-Public Use
  Company Number: FR-AUROBINDO-AUR-APL-2019-017412

PATIENT
  Sex: Male

DRUGS (8)
  1. CRESTOR [Concomitant]
     Active Substance: ROSUVASTATIN CALCIUM
     Indication: HYPOCHOLESTEROLAEMIA
     Dosage: 5 MILLIGRAM
     Route: 048
  2. MODOPAR [Concomitant]
     Active Substance: BENSERAZIDE HYDROCHLORIDE\LEVODOPA
     Indication: PRODUCT USED FOR UNKNOWN INDICATION
     Dosage: 187.5 MILLIGRAM (ANTI PARKINSONIAN)
     Route: 048
  3. PIRACETAM [Concomitant]
     Active Substance: PIRACETAM
     Indication: PARKINSONISM
     Dosage: 1 DOSAGE FORM
     Route: 048
  4. FERROUS CHLORIDE [Concomitant]
     Active Substance: FERROUS CHLORIDE
     Indication: MINERAL SUPPLEMENTATION
     Dosage: 90 MILLIGRAM
     Route: 048
  5. CLOPIDOGREL [Suspect]
     Active Substance: CLOPIDOGREL BISULFATE
     Indication: PRODUCT USED FOR UNKNOWN INDICATION
     Dosage: 75 MILLIGRAM
     Route: 048
     Dates: start: 20190215
  6. LERCANIDIPINE [Concomitant]
     Active Substance: LERCANIDIPINE
     Indication: HYPERTENSION
     Dosage: 5 MILLIGRAM
     Route: 048
  7. ACETYLSALICYLIC ACID [Suspect]
     Active Substance: ASPIRIN
     Indication: PRODUCT USED FOR UNKNOWN INDICATION
     Dosage: 75 MILLIGRAM
     Route: 048
  8. LANSOPRAZOLE. [Concomitant]
     Active Substance: LANSOPRAZOLE
     Indication: PRODUCT USED FOR UNKNOWN INDICATION
     Dosage: 30 MILLIGRAM (GASTRIC PROTECTOR)
     Route: 048

REACTIONS (1)
  - Bundle branch block [Recovered/Resolved]
